FAERS Safety Report 8814538 (Version 1)
Quarter: 2012Q4

REPORT INFORMATION
  Report Type: 
  Country: TT (occurrence: TT)
  Receive Date: 20120928
  Receipt Date: 20120928
  Transmission Date: 20130627
  Serious: Yes (Other)
  Sender: FDA-Public Use
  Company Number: PHHY2012TT084357

PATIENT
  Sex: Male

DRUGS (4)
  1. MYFORTIC [Suspect]
     Indication: RENAL TRANSPLANT
     Dosage: 360 mg, BID
     Dates: start: 201005, end: 201208
  2. TACROLIMUS [Concomitant]
     Dosage: 5 mg, BID
     Route: 048
  3. PREDNISOLONE [Concomitant]
     Dosage: 10 mg
     Route: 048
  4. FLOMAX [Concomitant]
     Dosage: 0.4 mg
     Route: 048

REACTIONS (2)
  - Weight decreased [Unknown]
  - Diarrhoea [Recovered/Resolved]
